FAERS Safety Report 19399212 (Version 3)
Quarter: 2021Q3

REPORT INFORMATION
  Report Type: Spontaneous
  Country: ES (occurrence: ES)
  Receive Date: 20210610
  Receipt Date: 20210802
  Transmission Date: 20211014
  Serious: Yes (Other)
  Sender: FDA-Public Use
  Company Number: ES-ELI_LILLY_AND_COMPANY-ES202106000106

PATIENT
  Sex: Male

DRUGS (1)
  1. TALTZ [Suspect]
     Active Substance: IXEKIZUMAB
     Indication: PSORIASIS
     Dosage: 80 MG, UNKNOWN
     Route: 058
     Dates: start: 2020, end: 20210529

REACTIONS (6)
  - Bone disorder [Unknown]
  - Rheumatoid arthritis [Unknown]
  - Injection site swelling [Recovered/Resolved]
  - Hip fracture [Recovering/Resolving]
  - Musculoskeletal discomfort [Unknown]
  - Psoriasis [Recovering/Resolving]
